FAERS Safety Report 15941676 (Version 1)
Quarter: 2019Q1

REPORT INFORMATION
  Report Type: Spontaneous
  Country: US (occurrence: US)
  Receive Date: 20190210
  Receipt Date: 20190210
  Transmission Date: 20190417
  Serious: Yes (Other)
  Sender: FDA-Public Use
  Company Number: None

PATIENT
  Age: 43 Year
  Sex: Female
  Weight: 121.5 kg

DRUGS (1)
  1. BUTRANS [Suspect]
     Active Substance: BUPRENORPHINE
     Indication: PAIN
     Dosage: ?          OTHER STRENGTH:NA;QUANTITY:1 PATCH(ES);OTHER FREQUENCY:1 PER WEEK;OTHER ROUTE:PATCH?
     Dates: start: 20180815, end: 20190206

REACTIONS (2)
  - Constipation [None]
  - Heart rate increased [None]

NARRATIVE: CASE EVENT DATE: 20190201
